FAERS Safety Report 8466632 (Version 3)
Quarter: 2012Q4

REPORT INFORMATION
  Report Type: 
  Country: US (occurrence: US)
  Receive Date: 20120319
  Receipt Date: 20120913
  Transmission Date: 20130627
  Serious: Yes (Other)
  Sender: FDA-Public Use
  Company Number: US-ROCHE-788911

PATIENT
  Age: 26 None
  Sex: Female
  Weight: 63.56 kg

DRUGS (4)
  1. ACCUTANE [Suspect]
     Indication: ACNE
     Route: 048
     Dates: start: 2001, end: 2002
  2. ACCUTANE [Suspect]
     Route: 048
     Dates: start: 200402, end: 200406
  3. ACCUTANE [Suspect]
     Route: 048
  4. DYNACIN [Concomitant]
     Indication: ACNE
     Route: 065

REACTIONS (13)
  - Crohn^s disease [Unknown]
  - Inflammatory bowel disease [Unknown]
  - Emotional distress [Not Recovered/Not Resolved]
  - Colitis [Unknown]
  - Depression [Unknown]
  - Suicidal ideation [Unknown]
  - Suicide attempt [Unknown]
  - Anal fissure [Unknown]
  - Haemorrhoids [Unknown]
  - Blood cholesterol increased [Unknown]
  - Blood triglycerides increased [Unknown]
  - Epistaxis [Unknown]
  - Skin discolouration [Unknown]
